FAERS Safety Report 8585316-X (Version None)
Quarter: 2012Q3

REPORT INFORMATION
  Report Type: 
  Country: None (occurrence: None)
  Receive Date: 20120810
  Receipt Date: 20120730
  Transmission Date: 20120928
  Serious: Yes (Other)
  Sender: FDA-Public Use
  Company Number: ES-SANOFI-AVENTIS-2012SA033814

PATIENT
  Age: 38 Year
  Sex: Female

DRUGS (6)
  1. MEPERIDINE HCL [Suspect]
     Indication: RENAL COLIC
     Route: 065
  2. ACETAMINOPHEN [Suspect]
     Indication: RENAL COLIC
     Route: 042
  3. SCOPOLAMINE [Suspect]
     Indication: RENAL COLIC
     Route: 042
  4. DICLOFENAC SODIUM [Suspect]
     Indication: RENAL COLIC
     Dosage: 6 DOSES
     Route: 030
  5. DIAZEPAM [Suspect]
     Indication: RENAL COLIC
     Route: 042
  6. DIPYRONE TAB [Suspect]
     Indication: RENAL COLIC
     Route: 042

REACTIONS (2)
  - OLIGOHYDRAMNIOS [None]
  - MATERNAL EXPOSURE DURING PREGNANCY [None]
